FAERS Safety Report 9494005 (Version 2)
Quarter: 2013Q3

REPORT INFORMATION
  Report Type: Spontaneous
  Country: JP (occurrence: JP)
  Receive Date: 20130903
  Receipt Date: 20130903
  Transmission Date: 20140515
  Serious: Yes (Hospitalization)
  Sender: FDA-Public Use
  Company Number: JP-MERCK-1307JPN008916

PATIENT
  Age: 69 Year
  Sex: Female

DRUGS (6)
  1. KIPRES [Suspect]
     Indication: OROPHARYNGEAL DISCOMFORT
     Dosage: 10 MG, QD
     Route: 048
     Dates: start: 20120712, end: 20120729
  2. KIPRES [Suspect]
     Indication: ALLERGIC SINUSITIS
  3. KIPRES [Suspect]
     Indication: PHARYNGITIS
  4. KIPRES [Suspect]
     Indication: EPIGLOTTIC CYST
  5. SAIBOKU-TO [Suspect]
     Indication: OROPHARYNGEAL DISCOMFORT
     Dosage: DAILY DOSE 7.5MG
     Route: 048
     Dates: start: 20120712, end: 20120729
  6. NORVASC [Concomitant]
     Dosage: 5 MG, QD
     Route: 048

REACTIONS (1)
  - Drug-induced liver injury [Unknown]
